FAERS Safety Report 8860221 (Version 4)
Quarter: 2013Q4

REPORT INFORMATION
  Report Type: Report from Study
  Country: JP (occurrence: JP)
  Receive Date: 20121025
  Receipt Date: 20131127
  Transmission Date: 20140711
  Serious: Yes (Hospitalization, Other)
  Sender: FDA-Public Use
  Company Number: JP-VERTEX PHARMACEUTICAL INC.-2012-022600

PATIENT
  Age: 68 Year
  Sex: Female

DRUGS (20)
  1. VX-950 (TELAPREVIR) [Suspect]
     Indication: CHRONIC HEPATITIS C
     Dosage: 2250 MG, QD
     Route: 048
     Dates: start: 20120812, end: 20120914
  2. VX-950 (TELAPREVIR) [Suspect]
     Dosage: 1500 MG, QD
     Route: 048
     Dates: start: 20120915, end: 20120923
  3. VX-950 (TELAPREVIR) [Suspect]
     Dosage: 750 MG, QD
     Route: 048
     Dates: start: 20120924, end: 20120930
  4. VX-950 (TELAPREVIR) [Suspect]
     Dosage: 500 MG, QD
     Route: 048
     Dates: start: 20121001, end: 20121005
  5. REBETOL [Suspect]
     Indication: CHRONIC HEPATITIS C
     Dosage: 400 MG, QD
     Route: 048
     Dates: start: 20120812, end: 20120914
  6. REBETOL [Suspect]
     Dosage: 200 MG, QD
     Route: 048
     Dates: start: 20120915, end: 20120923
  7. LOXONIN [Suspect]
     Indication: PROPHYLAXIS
     Dosage: 120 MG, QD
     Route: 048
     Dates: start: 20120812, end: 20121017
  8. PEGINTERFERON ALFA-2B [Concomitant]
     Dosage: 1.5 ?G/KG, QW
     Route: 058
     Dates: start: 20120812, end: 20121013
  9. LOCHOL [Concomitant]
     Dosage: 30 MG, QD
     Route: 048
     Dates: start: 20120812, end: 20121017
  10. TALION [Concomitant]
     Dosage: 20 MG, QD
     Route: 048
     Dates: start: 20120812, end: 20121017
  11. SELBEX [Concomitant]
     Dosage: 100 MG, QD
     Route: 048
     Dates: start: 20120812, end: 20121017
  12. ANTEBATE [Concomitant]
     Dosage: 5 G, QD
     Route: 061
     Dates: start: 20120812
  13. ANTEBATE [Concomitant]
     Dosage: 5 G, PRN
     Route: 061
     Dates: end: 20121017
  14. NEXIUM [Concomitant]
     Dosage: 20 MG, QD
     Route: 048
     Dates: start: 20120812, end: 20121026
  15. FEBURIC [Concomitant]
     Dosage: 20 MG, QD
     Route: 048
     Dates: start: 20120813, end: 20121005
  16. OLMETEC [Concomitant]
     Dosage: 20 MG, QD
     Route: 048
     Dates: end: 20120930
  17. FLOMAX [Concomitant]
     Dosage: 200 MG, QD
     Route: 048
     Dates: start: 20121024, end: 20121026
  18. SODIUM BICARBONATE [Concomitant]
     Dosage: 1.5 G, QD
     Route: 048
     Dates: start: 20121018
  19. CELECOX [Concomitant]
     Dosage: 400 MG, QD
     Route: 048
     Dates: start: 20121021
  20. LASIX [Concomitant]
     Dosage: 20 MG, QD
     Route: 048
     Dates: start: 20121024

REACTIONS (2)
  - Haemoglobin decreased [Recovered/Resolved]
  - Renal failure acute [Recovered/Resolved]
